FAERS Safety Report 18239451 (Version 3)
Quarter: 2020Q4

REPORT INFORMATION
  Report Type: Report from Study
  Country: GB (occurrence: GB)
  Receive Date: 20200908
  Receipt Date: 20201117
  Transmission Date: 20210113
  Serious: Yes (Other)
  Sender: FDA-Public Use
  Company Number: GB-AMGEN-GBRSL2020142421

PATIENT
  Age: 55 Year
  Sex: Male

DRUGS (1)
  1. AMGEVITA [Suspect]
     Active Substance: ADALIMUMAB
     Indication: PSORIATIC ARTHROPATHY
     Dosage: 40 MICROGRAM, Q2WK
     Route: 065

REACTIONS (4)
  - Tympanic membrane perforation [Unknown]
  - Immunodeficiency [Unknown]
  - Ear infection [Unknown]
  - Psoriasis [Unknown]
